FAERS Safety Report 4327154-X (Version None)
Quarter: 2004Q1

REPORT INFORMATION
  Report Type: 
  Country: None (occurrence: None)
  Receive Date: 20040330
  Receipt Date: 20040315
  Transmission Date: 20041129
  Serious: Yes (Other)
  Sender: FDA-Public Use
  Company Number: GB-GLAXOSMITHKLINE-B0326723A

PATIENT

DRUGS (1)
  1. LAMICTAL [Suspect]

REACTIONS (5)
  - DRUG EXPOSURE DURING PREGNANCY [None]
  - IRRITABILITY [None]
  - MICROCEPHALY [None]
  - SMALL FOR DATES BABY [None]
  - SOMNOLENCE [None]
